FAERS Safety Report 7249408-X (Version None)
Quarter: 2011Q1

REPORT INFORMATION
  Report Type: 
  Country: None (occurrence: None)
  Receive Date: 20110128
  Receipt Date: 20110115
  Transmission Date: 20110831
  Serious: Yes (Hospitalization, Other)
  Sender: FDA-Public Use
  Company Number: ES-ELI_LILLY_AND_COMPANY-ES201101003679

PATIENT
  Sex: Female
  Weight: 50 kg

DRUGS (8)
  1. ADIRO [Concomitant]
     Indication: CEREBROVASCULAR ACCIDENT
     Dosage: 100 MG, DAILY (1/D)
     Route: 048
  2. TENORETIC [Concomitant]
     Indication: HYPERTENSION
     Dosage: 100 MG, HALF A TABLET EVERY 24 HOURS
     Route: 048
  3. NUMATOL [Concomitant]
     Indication: CEREBROVASCULAR ACCIDENT
     Dosage: UNK, DAILY (1/D)
     Route: 048
  4. OSTEOPOR [Concomitant]
     Indication: OSTEOPOROSIS
     Dosage: UNK, TWO CAPSULES EVERY 12 HOURS
     Route: 048
  5. IDEOS [Concomitant]
     Indication: OSTEOPOROSIS
     Dosage: UNK, DAILY (1/D)
     Route: 048
  6. BRAINAL [Concomitant]
     Indication: CEREBROVASCULAR ACCIDENT
     Dosage: UNK, EVERY 12 HOURS
     Route: 048
  7. ANACERVIX [Concomitant]
     Indication: CEREBROVASCULAR ACCIDENT
     Dosage: 50 MG, EVERY 12 HOURS
     Route: 048
  8. FORTEO [Suspect]
     Indication: OSTEOPOROSIS
     Dosage: 20 UG, DAILY (1/D)
     Route: 058
     Dates: start: 20090610, end: 20110110

REACTIONS (5)
  - LOSS OF CONSCIOUSNESS [None]
  - DIARRHOEA [None]
  - VOMITING [None]
  - DEHYDRATION [None]
  - SYNCOPE [None]
